FAERS Safety Report 17687318 (Version 1)
Quarter: 2020Q2

REPORT INFORMATION
  Report Type: Report from Study
  Country: DE (occurrence: DE)
  Receive Date: 20200421
  Receipt Date: 20200421
  Transmission Date: 20200714
  Serious: Yes (Other)
  Sender: FDA-Public Use
  Company Number: DE-ROCHE-2582591

PATIENT
  Age: 30 Year
  Sex: Female

DRUGS (3)
  1. OCREVUS [Suspect]
     Active Substance: OCRELIZUMAB
     Indication: RELAPSING MULTIPLE SCLEROSIS
     Dosage: THEN 600 MG EVERY 6 MONTHS
     Route: 042
     Dates: start: 20190515, end: 20190530
  2. GABAPENTIN. [Concomitant]
     Active Substance: GABAPENTIN
     Route: 065
  3. SODIUM PROPIONATE [Concomitant]
     Active Substance: SODIUM PROPIONATE

REACTIONS (20)
  - Intracranial pressure increased [Recovering/Resolving]
  - B-lymphocyte count decreased [Recovering/Resolving]
  - Alopecia [Recovering/Resolving]
  - Tinnitus [Recovering/Resolving]
  - Hypercapnia [Recovering/Resolving]
  - Pharyngeal polyp [Not Recovered/Not Resolved]
  - Migraine [Recovering/Resolving]
  - Cognitive disorder [Recovering/Resolving]
  - Gait disturbance [Recovered/Resolved]
  - Pyelonephritis [Recovered/Resolved]
  - Speech disorder [Recovering/Resolving]
  - Dysarthria [Unknown]
  - Quadriparesis [Recovering/Resolving]
  - Dry throat [Recovering/Resolving]
  - Onychomycosis [Recovering/Resolving]
  - Platypnoea [Unknown]
  - Muscle disorder [Unknown]
  - Dyspnoea [Recovering/Resolving]
  - Fatigue [Recovering/Resolving]
  - Muscular weakness [Unknown]

NARRATIVE: CASE EVENT DATE: 201906
